FAERS Safety Report 21566351 (Version 1)
Quarter: 2022Q4

REPORT INFORMATION
  Report Type: Spontaneous
  Country: ES (occurrence: ES)
  Receive Date: 20221108
  Receipt Date: 20221108
  Transmission Date: 20230113
  Serious: Yes (Other)
  Sender: FDA-Public Use
  Company Number: ES-SA-2022SA457849

PATIENT
  Age: 45 Year
  Sex: Male

DRUGS (3)
  1. ELOCTA [Suspect]
     Active Substance: EFMOROCTOCOG ALFA
     Dosage: 3000 IU, BIW
     Dates: start: 2018
  2. ELOCTA [Suspect]
     Active Substance: EFMOROCTOCOG ALFA
     Dosage: 3000 IU, BIW
     Dates: start: 2018
  3. HYDROCHLOROTHIAZIDE\RAMIPRIL [Concomitant]
     Active Substance: HYDROCHLOROTHIAZIDE\RAMIPRIL
     Indication: Hypertension
     Dosage: UNK

REACTIONS (7)
  - Haemarthrosis [Unknown]
  - Lumbar hernia [Unknown]
  - Sciatica [Unknown]
  - Haematoma muscle [Unknown]
  - Joint ankylosis [Unknown]
  - Back pain [Unknown]
  - Drug ineffective [Unknown]
